FAERS Safety Report 15103808 (Version 1)
Quarter: 2018Q2

REPORT INFORMATION
  Report Type: Spontaneous
  Country: US (occurrence: US)
  Receive Date: 20180611
  Receipt Date: 20180611
  Transmission Date: 20180711
  Serious: No
  Sender: FDA-Public Use
  Company Number: None

PATIENT
  Age: 67 Year
  Sex: Male

DRUGS (9)
  1. ATORVASTATIN [Concomitant]
     Active Substance: ATORVASTATIN
  2. TIMOPTIC [Concomitant]
     Active Substance: TIMOLOL MALEATE
  3. GABAPENTIN. [Concomitant]
     Active Substance: GABAPENTIN
  4. BENAZEPRIL [Concomitant]
     Active Substance: BENAZEPRIL HYDROCHLORIDE
  5. OTEZLA [Suspect]
     Active Substance: APREMILAST
     Indication: PRODUCT USED FOR UNKNOWN INDICATION
     Dosage: 10MG + 20MG, 30MG AS DIRECTED ORAL
     Route: 048
     Dates: start: 20180531
  6. RESTASIS [Concomitant]
     Active Substance: CYCLOSPORINE
  7. ZIOPTAN [Concomitant]
     Active Substance: TAFLUPROST
  8. METAXALONE. [Concomitant]
     Active Substance: METAXALONE
  9. ASPIRIN. [Concomitant]
     Active Substance: ASPIRIN

REACTIONS (2)
  - Malaise [None]
  - Atrial fibrillation [None]

NARRATIVE: CASE EVENT DATE: 20180608
